FAERS Safety Report 9813448 (Version 1)
Quarter: 2014Q1

REPORT INFORMATION
  Report Type: Spontaneous
  Country: IT (occurrence: IT)
  Receive Date: 20140113
  Receipt Date: 20140113
  Transmission Date: 20141002
  Serious: Yes (Other)
  Sender: FDA-Public Use
  Company Number: PHHY2014IT001679

PATIENT
  Sex: Female

DRUGS (5)
  1. FUROSEMIDE [Suspect]
     Dates: start: 20121005, end: 20131004
  2. ISOPTIN [Suspect]
     Dosage: 80 MG, UNK
     Dates: start: 20121005, end: 20131004
  3. FOSIPRES [Suspect]
     Dosage: 10 MG, UNK
     Dates: start: 20121005, end: 20131004
  4. LANOXIN [Concomitant]
     Dosage: 0.125 MG, UNK
  5. COUMADIN [Concomitant]
     Dosage: 5 MG, UNK

REACTIONS (1)
  - Presyncope [Recovering/Resolving]
